FAERS Safety Report 5630395-2 (Version None)
Quarter: 2008Q1

REPORT INFORMATION
  Report Type: 
  Country: None (occurrence: None)
  Receive Date: 20080219
  Receipt Date: 20080212
  Transmission Date: 20080703
  Serious: Yes (Other)
  Sender: FDA-Public Use
  Company Number: FR-BRISTOL-MYERS SQUIBB COMPANY-14074512

PATIENT
  Age: 59 Year
  Sex: Female

DRUGS (3)
  1. MUCOMYSTENDO [Suspect]
     Indication: SINUSITIS
     Route: 055
  2. CELESTONE [Suspect]
     Indication: SINUSITIS
     Route: 055
  3. GENTALLINE [Suspect]
     Indication: SINUSITIS
     Route: 055

REACTIONS (1)
  - TYPE I HYPERSENSITIVITY [None]
